FAERS Safety Report 4806334-0 (Version None)
Quarter: 2005Q4

REPORT INFORMATION
  Report Type: 
  Country: None (occurrence: None)
  Receive Date: 20051021
  Receipt Date: 20051010
  Transmission Date: 20060501
  Serious: Yes (Death, Hospitalization)
  Sender: FDA-Public Use
  Company Number: ES-ROCHE-420481

PATIENT
  Age: 35 Year
  Sex: Male

DRUGS (6)
  1. CLONAZEPAM [Suspect]
     Route: 048
     Dates: end: 20050615
  2. BAYCIP [Interacting]
     Indication: URINARY TRACT INFECTION
     Route: 048
     Dates: start: 20050707, end: 20050717
  3. AUGMENTIN '125' [Interacting]
     Indication: RESPIRATORY DISORDER
     Route: 042
     Dates: start: 20050702, end: 20050708
  4. AREMIS [Interacting]
     Route: 048
     Dates: end: 20050615
  5. SINOGAN [Interacting]
     Route: 048
     Dates: end: 20050615
  6. RISPERDAL [Interacting]
     Route: 048
     Dates: end: 20050615

REACTIONS (3)
  - AGRANULOCYTOSIS [None]
  - PNEUMONIA [None]
  - URINARY TRACT INFECTION [None]
